FAERS Safety Report 7430018-6 (Version None)
Quarter: 2011Q2

REPORT INFORMATION
  Report Type: 
  Country: None (occurrence: None)
  Receive Date: 20110421
  Receipt Date: 20110414
  Transmission Date: 20111010
  Serious: Yes (Hospitalization, Other)
  Sender: FDA-Public Use
  Company Number: US-US-EMD SERONO, INC.-7054003

PATIENT
  Sex: Female

DRUGS (1)
  1. REBIF [Suspect]
     Indication: MULTIPLE SCLEROSIS
     Route: 058
     Dates: start: 20021014

REACTIONS (5)
  - OSTEOARTHRITIS [None]
  - BUNION [None]
  - INJECTION SITE MASS [None]
  - INJECTION SITE PAIN [None]
  - TENDONITIS [None]
